FAERS Safety Report 13230719 (Version 2)
Quarter: 2017Q1

REPORT INFORMATION
  Report Type: Spontaneous
  Country: US (occurrence: US)
  Receive Date: 20170214
  Receipt Date: 20170303
  Transmission Date: 20170428
  Serious: No
  Sender: FDA-Public Use
  Company Number: US-LUNDBECK-DKLU2021547

PATIENT
  Sex: Male
  Weight: 73 kg

DRUGS (4)
  1. NORTHERA [Suspect]
     Active Substance: DROXIDOPA
     Dosage: SCHEDULE C?100MG, TITRATED OVER A 21 DAY PERIOD UNTIL PATIENT REACHES NORTHERA 400MG TID
     Route: 048
  2. MIDODRINE [Concomitant]
     Active Substance: MIDODRINE
     Indication: PRODUCT USED FOR UNKNOWN INDICATION
     Route: 065
  3. NORTHERA [Suspect]
     Active Substance: DROXIDOPA
     Dosage: SCHEDULE C?100MG, TITRATED OVER A 21 DAY PERIOD UNTIL PATIENT REACHES NORTHERA 400MG TID
     Route: 048
  4. NORTHERA [Suspect]
     Active Substance: DROXIDOPA
     Indication: PRODUCT USED FOR UNKNOWN INDICATION
     Dosage: SCHEDULE C?100MG, TITRATED OVER A 21 DAY PERIOD UNTIL PATIENT REACHES NORTHERA 400MG TID
     Route: 048
     Dates: start: 201605

REACTIONS (8)
  - Hypokinesia [Unknown]
  - Weight fluctuation [Unknown]
  - Arthralgia [Unknown]
  - Dizziness [Unknown]
  - Blood pressure fluctuation [Not Recovered/Not Resolved]
  - Musculoskeletal stiffness [Unknown]
  - Fatigue [Unknown]
  - Muscular weakness [Unknown]
